FAERS Safety Report 22624115 (Version 1)
Quarter: 2023Q2

REPORT INFORMATION
  Report Type: Spontaneous
  Country: US (occurrence: US)
  Receive Date: 20230621
  Receipt Date: 20230621
  Transmission Date: 20230721
  Serious: No
  Sender: FDA-Public Use
  Company Number: US-SA-SAC20230619000172

PATIENT
  Age: 43 Year
  Sex: Male

DRUGS (1)
  1. DUPIXENT [Suspect]
     Active Substance: DUPILUMAB
     Indication: Dyshidrotic eczema
     Dosage: 600 MG, 1X
     Route: 058
     Dates: start: 20230512

REACTIONS (5)
  - Fatigue [Unknown]
  - Somnolence [Unknown]
  - Sleep disorder [Unknown]
  - Condition aggravated [Unknown]
  - Product use in unapproved indication [Unknown]

NARRATIVE: CASE EVENT DATE: 20230512
